FAERS Safety Report 6616877-5 (Version None)
Quarter: 2010Q1

REPORT INFORMATION
  Report Type: 
  Country: None (occurrence: None)
  Receive Date: 20100301
  Receipt Date: 20100212
  Transmission Date: 20100710
  Serious: Yes (Death)
  Sender: FDA-Public Use
  Company Number: 1000012130

PATIENT
  Age: 14 Year
  Sex: Male

DRUGS (3)
  1. CITALOPRAM HYDROBROMIDE [Suspect]
     Indication: DEPRESSION
  2. FLECAINIDE [Suspect]
  3. METOPROLOL TARTRATE [Suspect]

REACTIONS (9)
  - BRADYCARDIA [None]
  - COMPLETED SUICIDE [None]
  - CONVULSION [None]
  - ELECTROCARDIOGRAM QT PROLONGED [None]
  - HYPOTENSION [None]
  - MULTIPLE DRUG OVERDOSE [None]
  - PULSE ABSENT [None]
  - PULSE PRESSURE DECREASED [None]
  - UNRESPONSIVE TO STIMULI [None]
